FAERS Safety Report 5985331-6 (Version None)
Quarter: 2008Q4

REPORT INFORMATION
  Report Type: 
  Country: None (occurrence: None)
  Receive Date: 20081208
  Receipt Date: 20080318
  Transmission Date: 20090506
  Serious: No
  Sender: FDA-Public Use
  Company Number: US-AMGEN-KDL267917

PATIENT
  Sex: Female

DRUGS (7)
  1. ENBREL [Suspect]
     Indication: RHEUMATOID ARTHRITIS
     Route: 058
     Dates: start: 20070402
  2. CELEBRA [Concomitant]
  3. NEXIUM [Concomitant]
  4. TOPROL-XL [Concomitant]
  5. FOSAMAX [Concomitant]
  6. VYTORIN [Concomitant]
  7. HYDROCHLOROTHIAZIDE [Concomitant]

REACTIONS (2)
  - BRONCHITIS [None]
  - INFLUENZA [None]
